FAERS Safety Report 6562668-3 (Version None)
Quarter: 2010Q1

REPORT INFORMATION
  Report Type: 
  Country: None (occurrence: None)
  Receive Date: 20100130
  Receipt Date: 20091206
  Transmission Date: 20100710
  Serious: No
  Sender: FDA-Public Use
  Company Number: US-ABBOTT-09P-163-0609425-00

PATIENT
  Sex: Male
  Weight: 50.848 kg

DRUGS (3)
  1. HUMIRA [Suspect]
     Indication: CROHN'S DISEASE
     Dates: start: 20090826
  2. HUMIRA [Suspect]
  3. PREDNISONE [Concomitant]
     Indication: DRUG USE FOR UNKNOWN INDICATION

REACTIONS (7)
  - ABDOMINAL PAIN [None]
  - CROHN'S DISEASE [None]
  - DECREASED APPETITE [None]
  - NAUSEA [None]
  - SINUSITIS [None]
  - VOMITING [None]
  - WEIGHT DECREASED [None]
